FAERS Safety Report 5916129-2 (Version None)
Quarter: 2008Q4

REPORT INFORMATION
  Report Type: 
  Country: None (occurrence: None)
  Receive Date: 20081009
  Receipt Date: 20081009
  Transmission Date: 20090506
  Serious: Yes (Death)
  Sender: FDA-Public Use
  Company Number: None

PATIENT
  Sex: Female

DRUGS (8)
  1. REVLIMID [Suspect]
     Indication: MULTIPLE MYELOMA
     Dosage: 10 MG DAILY 21D/28D ORAL
     Route: 048
  2. ACETAMINOPHEN RECTAL SUPP [Concomitant]
  3. MORPHINE [Concomitant]
  4. LORAZEPAM [Concomitant]
  5. ATROPINE [Concomitant]
  6. ALBUTEROL [Suspect]
  7. BISACODYL RECTAL SUPP [Concomitant]
  8. TYLENOL (CAPLET) [Concomitant]

REACTIONS (1)
  - DEATH [None]
